FAERS Safety Report 25045587 (Version 2)
Quarter: 2025Q1

REPORT INFORMATION
  Report Type: Report from Study
  Country: US (occurrence: US)
  Receive Date: 20250306
  Receipt Date: 20250317
  Transmission Date: 20250409
  Serious: Yes (Hospitalization, Other)
  Sender: ALEXION PHARMACEUTICALS
  Company Number: US-AstraZeneca-CH-00820220A

PATIENT
  Age: 60 Year
  Weight: 87.982 kg

DRUGS (8)
  1. TEZEPELUMAB [Suspect]
     Active Substance: TEZEPELUMAB
     Indication: Asthma
  2. TEZEPELUMAB [Suspect]
     Active Substance: TEZEPELUMAB
  3. BUDESONIDE [Concomitant]
     Active Substance: BUDESONIDE
  4. SYMBICORT [Concomitant]
     Active Substance: BUDESONIDE\FORMOTEROL FUMARATE DIHYDRATE
  5. Covid-19 Vaccine [Concomitant]
  6. INFLUENZA A (H1N1) VACCINE [Concomitant]
  7. TRELEGY ELLIPTA [Concomitant]
     Active Substance: FLUTICASONE FUROATE\UMECLIDINIUM BROMIDE\VILANTEROL TRIFENATATE
     Route: 065
  8. ALBUTEROL [Concomitant]
     Active Substance: ALBUTEROL
     Route: 065

REACTIONS (48)
  - Sepsis [Unknown]
  - Asthma [Recovering/Resolving]
  - Arrhythmia [Unknown]
  - Parainfluenzae virus infection [Recovering/Resolving]
  - Dyspnoea [Recovering/Resolving]
  - Wheezing [Recovering/Resolving]
  - Chest discomfort [Recovering/Resolving]
  - Productive cough [Recovering/Resolving]
  - Sinus pain [Recovering/Resolving]
  - Pyrexia [Recovering/Resolving]
  - Weight increased [Unknown]
  - Fatigue [Recovering/Resolving]
  - Ear pain [Unknown]
  - Nausea [Unknown]
  - Dyspepsia [Unknown]
  - Chest pain [Unknown]
  - Oedema [Unknown]
  - Malaise [Unknown]
  - Dysphonia [Unknown]
  - Myalgia [Unknown]
  - Rhinorrhoea [Unknown]
  - Heart rate increased [Unknown]
  - Paranasal sinus discomfort [Unknown]
  - Oropharyngeal pain [Unknown]
  - Chills [Recovering/Resolving]
  - Hyperhidrosis [Unknown]
  - Rhinitis allergic [Unknown]
  - Procedural pneumothorax [Unknown]
  - Hiatus hernia [Unknown]
  - Lung disorder [Unknown]
  - Bloody discharge [Unknown]
  - Oxygen saturation decreased [Unknown]
  - Nasal congestion [Unknown]
  - Joint swelling [Unknown]
  - Arthralgia [Unknown]
  - Dizziness [Unknown]
  - Tremor [Unknown]
  - Headache [Unknown]
  - Amnesia [Unknown]
  - Hypoaesthesia [Unknown]
  - Paraesthesia [Unknown]
  - Gait disturbance [Unknown]
  - Contusion [Unknown]
  - Obstructive sleep apnoea syndrome [Unknown]
  - Seasonal allergy [Unknown]
  - Breath sounds abnormal [Unknown]
  - Bronchitis [Unknown]
  - Lymphadenopathy [Unknown]
